FAERS Safety Report 12957884 (Version 1)
Quarter: 2016Q4

REPORT INFORMATION
  Report Type: Spontaneous
  Country: US (occurrence: US)
  Receive Date: 20161118
  Receipt Date: 20161118
  Transmission Date: 20170207
  Serious: No
  Sender: FDA-Public Use
  Company Number: US-AQUA PHARMACEUTICALS-2016AQU000238

PATIENT
  Sex: Female

DRUGS (1)
  1. ACTICLATE [Suspect]
     Active Substance: DOXYCYCLINE HYCLATE
     Dosage: UNK
     Route: 048

REACTIONS (1)
  - Paraesthesia [Recovered/Resolved]
